FAERS Safety Report 16824339 (Version 2)
Quarter: 2020Q4

REPORT INFORMATION
  Report Type: Report from Study
  Country: KR (occurrence: KR)
  Receive Date: 20190918
  Receipt Date: 20201228
  Transmission Date: 20210113
  Serious: Yes (Hospitalization)
  Sender: FDA-Public Use
  Company Number: KR-JNJFOC-20190806409

PATIENT
  Age: 30 Year
  Sex: Female

DRUGS (36)
  1. SOLONDO [Concomitant]
     Active Substance: PREDNISOLONE
     Route: 048
     Dates: start: 20190709, end: 20190717
  2. POTASSIUM CHLORIDE. [Concomitant]
     Active Substance: POTASSIUM CHLORIDE
     Route: 042
     Dates: start: 20190706, end: 20190706
  3. PHAZYME                            /00164001/ [Concomitant]
     Route: 048
     Dates: start: 20190706, end: 20190706
  4. MORPHINE SULFATE. [Concomitant]
     Active Substance: MORPHINE SULFATE
     Route: 042
     Dates: start: 20190707, end: 20190707
  5. PERI OLIMEL N4E [Concomitant]
     Route: 042
     Dates: start: 20190708, end: 20190708
  6. LIDOCAINE. [Concomitant]
     Active Substance: LIDOCAINE
     Route: 058
     Dates: start: 20190711, end: 20190711
  7. MIDAZOLAM. [Concomitant]
     Active Substance: MIDAZOLAM
     Route: 042
     Dates: start: 20190716, end: 20190716
  8. POTASSIUM CHLORIDE. [Concomitant]
     Active Substance: POTASSIUM CHLORIDE
     Route: 048
     Dates: start: 20190707, end: 20190707
  9. TRIDOL [Concomitant]
     Active Substance: TRAMADOL HYDROCHLORIDE
     Route: 042
     Dates: start: 20190707, end: 20190708
  10. HARMONILAN [Concomitant]
     Route: 048
     Dates: start: 20190711, end: 20190718
  11. OMAPONE [Concomitant]
     Route: 042
     Dates: start: 20190701, end: 20190702
  12. DENOGAN [Concomitant]
     Active Substance: PROPACETAMOL HYDROCHLORIDE
     Route: 042
     Dates: start: 20190702, end: 20190702
  13. FEROBA YOU [Concomitant]
     Dosage: 1 TAB
     Route: 048
     Dates: start: 20190709, end: 20190710
  14. HEPARIN [Concomitant]
     Active Substance: HEPARIN SODIUM
     Dosage: 1 TAB
     Route: 048
     Dates: start: 20190711, end: 20190711
  15. SMOFKABIVEN PERIPHERAL [Concomitant]
     Route: 042
     Dates: start: 20190709, end: 20190718
  16. CORTISOL [Concomitant]
     Active Substance: HYDROCORTISONE
     Route: 042
     Dates: start: 20190702, end: 20190704
  17. SMOFKABIVEN PERIPHERAL [Concomitant]
     Route: 042
     Dates: start: 20190704, end: 20190704
  18. TAZOPERAN [Concomitant]
     Route: 042
     Dates: start: 20190707, end: 20190718
  19. NEXIUM [Concomitant]
     Active Substance: ESOMEPRAZOLE MAGNESIUM
     Route: 048
     Dates: start: 20190709, end: 20190718
  20. MACPERAN [Concomitant]
     Active Substance: METOCLOPRAMIDE HYDROCHLORIDE
     Route: 042
     Dates: start: 20190701, end: 20190701
  21. TRIDOL [Concomitant]
     Active Substance: TRAMADOL HYDROCHLORIDE
     Route: 042
     Dates: start: 20190711, end: 20190711
  22. ALANINE W/ARGININE/CALCIUM CHLORIDE/08740401/ [Concomitant]
     Route: 048
     Dates: start: 20190706, end: 20190706
  23. ACETPHENOLISATINUM [Concomitant]
     Route: 042
     Dates: start: 20190706, end: 20190706
  24. STELARA [Suspect]
     Active Substance: USTEKINUMAB
     Indication: CROHN^S DISEASE
     Route: 042
     Dates: start: 20190701, end: 20190701
  25. TRIAXONE [Concomitant]
     Route: 042
     Dates: start: 20190702, end: 20190706
  26. GASTER                             /00661201/ [Concomitant]
     Active Substance: OMEPRAZOLE
     Route: 042
     Dates: start: 20190718, end: 20190718
  27. VENOFERRUM                         /00023550/ [Concomitant]
     Route: 042
     Dates: start: 20190715, end: 20190715
  28. VENOFERRUM                         /00023550/ [Concomitant]
     Route: 042
     Dates: start: 20190718, end: 20190718
  29. LUTHIONE [Concomitant]
     Route: 042
     Dates: start: 20190718, end: 20190718
  30. DICAMAX D PLUS [Concomitant]
     Dosage: 1 TAB
     Route: 048
     Dates: start: 20190710, end: 20190718
  31. ALMAGEL-F [Concomitant]
     Route: 048
     Dates: start: 20190711, end: 20190718
  32. JEIL ASCORBIC ACID [Concomitant]
     Route: 042
     Dates: start: 20190702, end: 20190702
  33. POTASSIUM CHLORIDE. [Concomitant]
     Active Substance: POTASSIUM CHLORIDE
     Route: 042
     Dates: start: 20190703, end: 20190703
  34. TRIDOL [Concomitant]
     Active Substance: TRAMADOL HYDROCHLORIDE
     Route: 042
     Dates: start: 20190704, end: 20190704
  35. SUSPENSION ANTIACIDA DF [Concomitant]
     Route: 042
     Dates: start: 20190707, end: 20190708
  36. VENOFERRUM                         /00023550/ [Concomitant]
     Route: 042
     Dates: start: 20190711, end: 20190711

REACTIONS (2)
  - Mesenteric abscess [Recovered/Resolved]
  - Pyrexia [Recovered/Resolved]

NARRATIVE: CASE EVENT DATE: 20190702
